FAERS Safety Report 6646469-3 (Version None)
Quarter: 2010Q1

REPORT INFORMATION
  Report Type: 
  Country: None (occurrence: None)
  Receive Date: 20100323
  Receipt Date: 20100311
  Transmission Date: 20100710
  Serious: Yes (Other)
  Sender: FDA-Public Use
  Company Number: DE-ROCHE-692276

PATIENT
  Sex: Male

DRUGS (2)
  1. ROACCUTAN [Suspect]
     Indication: ROSACEA
     Route: 065
  2. ROACCUTAN [Suspect]
     Route: 065
     Dates: start: 20060301

REACTIONS (5)
  - ATTENTION DEFICIT/HYPERACTIVITY DISORDER [None]
  - CERVICOBRACHIAL SYNDROME [None]
  - DEPRESSION [None]
  - DISTURBANCE IN ATTENTION [None]
  - PAIN [None]
